FAERS Safety Report 12147483 (Version 4)
Quarter: 2017Q1

REPORT INFORMATION
  Report Type: Spontaneous
  Country: FR (occurrence: FR)
  Receive Date: 20160304
  Receipt Date: 20170123
  Transmission Date: 20170428
  Serious: Yes (Hospitalization, Other)
  Sender: FDA-Public Use
  Company Number: FR-GLAXOSMITHKLINE-FR2016GSK030646

PATIENT
  Age: 51 Year
  Sex: Male

DRUGS (9)
  1. WELLVONE [Suspect]
     Active Substance: ATOVAQUONE
     Indication: HIV INFECTION
     Dosage: UNK
     Route: 048
     Dates: start: 20151120, end: 20160108
  2. ISENTRESS [Suspect]
     Active Substance: RALTEGRAVIR POTASSIUM
     Indication: HIV INFECTION
     Dosage: UNK
     Route: 048
     Dates: start: 20151206, end: 20160106
  3. TRIZIVIR [Concomitant]
     Active Substance: ABACAVIR SULFATE\LAMIVUDINE\ZIDOVUDINE
     Indication: HIV INFECTION
     Dosage: UNK
     Dates: start: 2006
  4. NORVIR [Suspect]
     Active Substance: RITONAVIR
     Indication: HIV INFECTION
     Dosage: UNK
     Route: 048
     Dates: start: 20151206, end: 20160106
  5. SIGMACILLINA [Concomitant]
     Active Substance: PENICILLIN G BENZATHINE
     Dosage: 2.4 MILLION IU, Z
     Dates: start: 20151126, end: 20151210
  6. ORBENINE [Suspect]
     Active Substance: CLOXACILLIN SODIUM
     Indication: PRODUCT USED FOR UNKNOWN INDICATION
     Dosage: UNK
     Dates: start: 20160412, end: 20160420
  7. INTELENCE [Suspect]
     Active Substance: ETRAVIRINE
     Indication: HIV INFECTION
     Dosage: UNK
     Route: 048
     Dates: start: 20151206, end: 20160106
  8. PREZISTA [Suspect]
     Active Substance: DARUNAVIR ETHANOLATE
     Indication: HIV INFECTION
     Dosage: UNK
     Route: 048
     Dates: start: 20151206, end: 20160106
  9. OXACILLINE [Concomitant]
     Active Substance: OXACILLIN SODIUM
     Dosage: UNK
     Dates: start: 20151126, end: 20151224

REACTIONS (1)
  - Drug reaction with eosinophilia and systemic symptoms [Recovered/Resolved]

NARRATIVE: CASE EVENT DATE: 20160104
